FAERS Safety Report 16318478 (Version 1)
Quarter: 2019Q2

REPORT INFORMATION
  Report Type: Spontaneous
  Country: US (occurrence: US)
  Receive Date: 20190409
  Receipt Date: 20190409
  Transmission Date: 20190711
  Serious: Yes (Other)
  Sender: FDA-Public Use
  Company Number: None

PATIENT
  Age: 8 Year
  Sex: Female
  Weight: 53.52 kg

DRUGS (15)
  1. TOPROL XL [Concomitant]
     Active Substance: METOPROLOL SUCCINATE
  2. WARFARIN [Concomitant]
     Active Substance: WARFARIN
  3. CREON [Concomitant]
     Active Substance: PANCRELIPASE AMYLASE\PANCRELIPASE LIPASE\PANCRELIPASE PROTEASE
  4. ACETAMINOPHEN. [Concomitant]
     Active Substance: ACETAMINOPHEN
  5. GLUCOSAMINE [Concomitant]
     Active Substance: GLUCOSAMINE
  6. LISINOPRIL. [Concomitant]
     Active Substance: LISINOPRIL
  7. ALBUTEROL SULFATE. [Concomitant]
     Active Substance: ALBUTEROL SULFATE
  8. MULTIVITAMIN [Concomitant]
     Active Substance: VITAMINS
  9. SUNITIB [Concomitant]
  10. LOSARTAN POTASSIUM. [Suspect]
     Active Substance: LOSARTAN POTASSIUM
     Indication: HYPERTENSION
     Route: 048
     Dates: start: 20190318
  11. LOSARTAN. [Concomitant]
     Active Substance: LOSARTAN
  12. LORATADINE. [Concomitant]
     Active Substance: LORATADINE
  13. UMECLIDINIUM-VILANTEROL [Concomitant]
  14. DILTIAZEM. [Concomitant]
     Active Substance: DILTIAZEM
  15. OMEPRAZOLE. [Concomitant]
     Active Substance: OMEPRAZOLE

REACTIONS (3)
  - Renal cell carcinoma [None]
  - Metastases to adrenals [None]
  - Metastases to pancreas [None]
